FAERS Safety Report 19303908 (Version 1)
Quarter: 2021Q2

REPORT INFORMATION
  Report Type: Spontaneous
  Country: None (occurrence: US)
  Receive Date: 20210525
  Receipt Date: 20210525
  Transmission Date: 20210717
  Serious: No
  Sender: FDA-Public Use
  Company Number: US-XTTRIUM LABORATORIES, INC-2111948

PATIENT
  Sex: Female

DRUGS (1)
  1. SCRUB CARE EXIDINE ?4 CHG [Suspect]
     Active Substance: CHLORHEXIDINE GLUCONATE
     Indication: FURUNCLE
     Route: 003

REACTIONS (2)
  - Application site irritation [Recovering/Resolving]
  - Cartilage atrophy [Unknown]
